FAERS Safety Report 16257774 (Version 1)
Quarter: 2019Q2

REPORT INFORMATION
  Report Type: Report from Study
  Country: US (occurrence: US)
  Receive Date: 20190430
  Receipt Date: 20190430
  Transmission Date: 20190711
  Serious: No
  Sender: FDA-Public Use
  Company Number: US-AGIOS-1902US00633

PATIENT

DRUGS (2)
  1. HYDROXYUREA. [Concomitant]
     Active Substance: HYDROXYUREA
     Indication: PRODUCT USED FOR UNKNOWN INDICATION
     Dosage: 1000 MILLIGRAM
  2. TIBSOVO [Suspect]
     Active Substance: IVOSIDENIB
     Indication: MYELOPROLIFERATIVE NEOPLASM
     Dosage: 250 MILLIGRAM, QD
     Route: 048
     Dates: start: 20190129

REACTIONS (4)
  - Off label use [Not Recovered/Not Resolved]
  - Limb mass [Unknown]
  - White blood cell count increased [Unknown]
  - White blood cell count decreased [Unknown]

NARRATIVE: CASE EVENT DATE: 20190129
